FAERS Safety Report 15524338 (Version 1)
Quarter: 2018Q4

REPORT INFORMATION
  Report Type: Spontaneous
  Country: FR (occurrence: FR)
  Receive Date: 20181019
  Receipt Date: 20181019
  Transmission Date: 20190205
  Serious: Yes (Life-Threatening, Hospitalization, Other)
  Sender: FDA-Public Use
  Company Number: FR-BRISTOL-MYERS SQUIBB COMPANY-BMS-2017-045440

PATIENT
  Age: 74 Year
  Sex: Male
  Weight: 73.2 kg

DRUGS (2)
  1. PERINDOPRIL EG [Suspect]
     Active Substance: PERINDOPRIL ERBUMINE
     Indication: HYPERTENSION
     Dosage: 8 MG, QD
     Route: 048
     Dates: start: 20150811, end: 20170403
  2. ELIQUIS [Suspect]
     Active Substance: APIXABAN
     Indication: CEREBROVASCULAR ACCIDENT PROPHYLAXIS
     Dosage: UNK UNK, BID
     Route: 048
     Dates: start: 20150811, end: 20170403

REACTIONS (8)
  - Somnolence [Unknown]
  - Hypertension [Recovering/Resolving]
  - Agitation [Recovering/Resolving]
  - Haemorrhagic stroke [Recovered/Resolved]
  - Cerebral haematoma [Recovering/Resolving]
  - Motor dysfunction [Recovering/Resolving]
  - Confusional state [Recovering/Resolving]
  - Ischaemic stroke [Recovered/Resolved]

NARRATIVE: CASE EVENT DATE: 20170403
